FAERS Safety Report 8299970 (Version 3)
Quarter: 2012Q4

REPORT INFORMATION
  Report Type: 
  Country: US (occurrence: US)
  Receive Date: 20111219
  Receipt Date: 20121112
  Transmission Date: 20130627
  Serious: No
  Sender: FDA-Public Use
  Company Number: US-ASTRAZENECA-2011SE65862

PATIENT
  Age: 61 Year
  Sex: Male

DRUGS (3)
  1. SYMBICORT PMDI [Suspect]
     Indication: CHRONIC OBSTRUCTIVE PULMONARY DISEASE
     Route: 055
     Dates: start: 201004, end: 201005
  2. CRESTOR [Suspect]
     Route: 048
  3. NASONEX [Concomitant]

REACTIONS (3)
  - Arthritis [Not Recovered/Not Resolved]
  - Chest pain [Recovered/Resolved]
  - Lung disorder [Unknown]
